FAERS Safety Report 9473030 (Version 2)
Quarter: 2014Q3

REPORT INFORMATION
  Report Type: Spontaneous
  Country: US (occurrence: US)
  Receive Date: 20130823
  Receipt Date: 20140808
  Transmission Date: 20150326
  Serious: No
  Sender: FDA-Public Use
  Company Number: US-BRISTOL-MYERS SQUIBB COMPANY-17348491

PATIENT
  Age: 60 Year
  Sex: Male
  Weight: 80.72 kg

DRUGS (5)
  1. NEURONTIN [Concomitant]
     Active Substance: GABAPENTIN
  2. MOTRIN [Concomitant]
     Active Substance: IBUPROFEN
     Indication: BACK PAIN
     Dosage: 1DF=E 8-1600MG/DAY
  3. SPRYCEL [Suspect]
     Active Substance: DASATINIB
     Indication: CHRONIC MYELOID LEUKAEMIA
     Dosage: 70MG-140MG IN MRNG,70MG AT NIGHT:DOSE RED:OCT12-70MG:INC 100MG(4 MNTH AGO),140 MG.
     Dates: start: 201208
  4. FLOMAX [Concomitant]
     Active Substance: TAMSULOSIN HYDROCHLORIDE
  5. EYE DROPS [Concomitant]
     Active Substance: TETRAHYDROZOLINE HYDROCHLORIDE

REACTIONS (5)
  - Diarrhoea [Recovering/Resolving]
  - Hypothyroidism [Unknown]
  - Chills [Unknown]
  - Fatigue [Unknown]
  - Anaemia [Unknown]
